FAERS Safety Report 9846119 (Version 3)
Quarter: 2014Q1

REPORT INFORMATION
  Report Type: Report from Study
  Country: US (occurrence: US)
  Receive Date: 20140127
  Receipt Date: 20140204
  Transmission Date: 20141002
  Serious: Yes (Hospitalization, Other)
  Sender: FDA-Public Use
  Company Number: US-SANOFI-AVENTIS-2013SA084507

PATIENT
  Age: 54 Year
  Sex: Female
  Weight: 63 kg

DRUGS (21)
  1. AUBAGIO [Suspect]
     Indication: MULTIPLE SCLEROSIS
     Route: 048
     Dates: start: 201307, end: 20131205
  2. ST MARY^S THISTLE [Concomitant]
     Indication: PROPHYLAXIS
     Dosage: ONCE OR TWICE A WEEK.
     Route: 065
  3. ASPIRIN [Concomitant]
     Indication: PRODUCT USED FOR UNKNOWN INDICATION
     Route: 048
  4. ATENOLOL [Concomitant]
     Indication: PRODUCT USED FOR UNKNOWN INDICATION
     Route: 048
  5. AMBIEN [Concomitant]
     Indication: PRODUCT USED FOR UNKNOWN INDICATION
     Route: 048
  6. AMITRIPTYLINE [Concomitant]
     Indication: PRODUCT USED FOR UNKNOWN INDICATION
     Route: 048
     Dates: start: 20131203
  7. FLUOXETINE [Concomitant]
     Indication: PRODUCT USED FOR UNKNOWN INDICATION
     Route: 048
  8. ATIVAN [Concomitant]
     Indication: PRODUCT USED FOR UNKNOWN INDICATION
     Route: 048
  9. ATOMOXETINE [Concomitant]
     Indication: PRODUCT USED FOR UNKNOWN INDICATION
     Route: 065
  10. HYDROCODONE W/APAP [Concomitant]
     Indication: PAIN
     Dosage: STRENGTH: 10 / 325 MG.
     Route: 065
  11. HYDROCODONE W/APAP [Concomitant]
     Indication: NECK INJURY
     Dosage: STRENGTH: 10 / 325 MG.
     Route: 065
  12. OMEPRAZOLE [Concomitant]
     Indication: PRODUCT USED FOR UNKNOWN INDICATION
     Dosage: 20 MG QD PRN.
     Route: 065
  13. PREMPRO [Concomitant]
     Indication: PRODUCT USED FOR UNKNOWN INDICATION
     Dosage: STRENGTH: 0.625 / 2.5 MG.
     Route: 048
  14. PROVIGIL [Concomitant]
     Indication: PRODUCT USED FOR UNKNOWN INDICATION
     Dosage: 200 MG QD PRN.
     Route: 048
     Dates: start: 20131203
  15. VITAMIN D3 [Concomitant]
     Indication: PRODUCT USED FOR UNKNOWN INDICATION
     Dosage: DOSE:2000 UNIT(S)
     Route: 048
  16. VITAMIN B6 [Concomitant]
     Indication: PRODUCT USED FOR UNKNOWN INDICATION
     Route: 048
  17. VITAMIN B12 [Concomitant]
     Indication: PRODUCT USED FOR UNKNOWN INDICATION
     Route: 048
  18. VITAMIN C [Concomitant]
     Indication: PRODUCT USED FOR UNKNOWN INDICATION
     Route: 048
  19. MULTIVITAMINS [Concomitant]
     Route: 048
  20. MAGNESIUM [Concomitant]
     Route: 048
  21. FISH OIL [Concomitant]
     Route: 048

REACTIONS (27)
  - Blood pressure increased [Recovered/Resolved]
  - Head injury [Unknown]
  - Dizziness [Recovered/Resolved]
  - Hypoaesthesia [Recovered/Resolved]
  - Anxiety [Recovered/Resolved]
  - Vision blurred [Recovered/Resolved]
  - Insomnia [Recovered/Resolved]
  - Fall [Unknown]
  - Chronic sinusitis [Unknown]
  - Disturbance in attention [Recovered/Resolved]
  - Dyspnoea [Unknown]
  - Nausea [Recovered/Resolved]
  - Pain [Not Recovered/Not Resolved]
  - Burning sensation [Recovered/Resolved]
  - Paraesthesia [Recovered/Resolved]
  - Incontinence [Unknown]
  - Gait disturbance [Unknown]
  - Coordination abnormal [Unknown]
  - Tremor [Unknown]
  - Loss of consciousness [Unknown]
  - Memory impairment [Unknown]
  - Depression [Unknown]
  - Obsessive-compulsive disorder [Unknown]
  - Personality change [Unknown]
  - Restlessness [Unknown]
  - Mood altered [Unknown]
  - Migraine [Unknown]
